FAERS Safety Report 19135135 (Version 1)
Quarter: 2021Q2

REPORT INFORMATION
  Report Type: Report from Study
  Country: EG (occurrence: EG)
  Receive Date: 20210414
  Receipt Date: 20210414
  Transmission Date: 20210717
  Serious: Yes (Other)
  Sender: FDA-Public Use
  Company Number: NVSC2021EG080334

PATIENT
  Age: 33 Year
  Sex: Male

DRUGS (2)
  1. GILENYA [Suspect]
     Active Substance: FINGOLIMOD HYDROCHLORIDE
     Indication: MULTIPLE SCLEROSIS
     Dosage: 0.5 MG, QD
     Route: 065
     Dates: start: 2015
  2. HEALSEC [Concomitant]
     Indication: PRODUCT USED FOR UNKNOWN INDICATION
     Dosage: 40 MG, QD
     Route: 065

REACTIONS (10)
  - Balance disorder [Recovered/Resolved]
  - Dizziness [Recovering/Resolving]
  - Nasopharyngitis [Recovered/Resolved]
  - Movement disorder [Recovered/Resolved]
  - Multiple sclerosis relapse [Recovered/Resolved]
  - Rhinitis allergic [Recovering/Resolving]
  - Pyrexia [Recovered/Resolved]
  - Vomiting [Recovered/Resolved]
  - Dizziness [Recovered/Resolved]
  - Otitis media [Recovering/Resolving]

NARRATIVE: CASE EVENT DATE: 202102
